FAERS Safety Report 19203651 (Version 1)
Quarter: 2021Q2

REPORT INFORMATION
  Report Type: Spontaneous
  Country: US (occurrence: US)
  Receive Date: 20210430
  Receipt Date: 20210430
  Transmission Date: 20210717
  Serious: Yes (Death)
  Sender: FDA-Public Use
  Company Number: US-BAYER-2021-127215

PATIENT
  Age: 69 Year
  Sex: Female

DRUGS (2)
  1. STIVARGA [Suspect]
     Active Substance: REGORAFENIB
     Indication: METASTASES TO LUNG
  2. STIVARGA [Suspect]
     Active Substance: REGORAFENIB
     Indication: COLORECTAL CANCER STAGE IV
     Dosage: UNK

REACTIONS (5)
  - Death [Fatal]
  - Urinary tract infection [None]
  - Fatigue [None]
  - Sleep disorder [None]
  - Chromaturia [None]
